FAERS Safety Report 9922191 (Version 4)
Quarter: 2014Q2

REPORT INFORMATION
  Report Type: Spontaneous
  Country: US (occurrence: US)
  Receive Date: 20140225
  Receipt Date: 20140416
  Transmission Date: 20141212
  Serious: Yes (Disabling)
  Sender: FDA-Public Use
  Company Number: US-NAPPMUNDI-USA-2014-0111482

PATIENT
  Age: 80 Year
  Sex: Female
  Weight: 86.17 kg

DRUGS (11)
  1. OXYCONTIN (NDA 22-272) [Suspect]
     Indication: PROCEDURAL PAIN
     Dosage: 10 MG, BID,  3 WEEKS
     Route: 048
     Dates: start: 20130312, end: 201304
  2. OXYCODONE AND ACETAMINOPHEN [Suspect]
     Indication: PAIN
     Dosage: 5/325MG Q4
     Route: 048
     Dates: start: 20130312, end: 201304
  3. LOSARTAN [Concomitant]
     Indication: BLOOD PRESSURE
     Dosage: 100 MG, UNK
  4. ALLEGRA [Concomitant]
     Indication: HYPERSENSITIVITY
     Dosage: 90 MG, AM
  5. VERAPAMIL [Concomitant]
     Indication: BLOOD PRESSURE
     Dosage: 240 MG TABLET, BID
     Route: 048
  6. PRILOSEC                           /00661201/ [Concomitant]
     Indication: PRODUCT USED FOR UNKNOWN INDICATION
     Dosage: 0.5 UNK, UNK
  7. CITALOPRAM [Concomitant]
     Indication: PRODUCT USED FOR UNKNOWN INDICATION
     Dosage: 20 MG TAB; 1/2 TABLET OR 10 MG, AM
  8. FUROSEMIDE [Concomitant]
     Indication: PRODUCT USED FOR UNKNOWN INDICATION
     Dosage: 20 MG, UNK
  9. POTASSIUM CHLORIDE [Concomitant]
     Indication: PRODUCT USED FOR UNKNOWN INDICATION
     Dosage: 10 UNK, UNK
  10. ALEVE [Concomitant]
     Indication: PRODUCT USED FOR UNKNOWN INDICATION
     Dosage: 1 TABLET, UNK
  11. ADVAIR [Concomitant]
     Indication: PRODUCT USED FOR UNKNOWN INDICATION
     Dosage: 50/500 MG

REACTIONS (1)
  - Deafness [Not Recovered/Not Resolved]
